FAERS Safety Report 16312688 (Version 1)
Quarter: 2019Q2

REPORT INFORMATION
  Report Type: Spontaneous
  Country: US (occurrence: US)
  Receive Date: 20190515
  Receipt Date: 20190515
  Transmission Date: 20190711
  Serious: No
  Sender: FDA-Public Use
  Company Number: US-LUPIN PHARMACEUTICALS INC.-2019-01955

PATIENT
  Sex: Male

DRUGS (7)
  1. MYCOPHENOLATE [Suspect]
     Active Substance: MYCOPHENOLIC ACID
     Indication: DIABETIC AMYOTROPHY
     Dosage: UNK
     Route: 065
  2. GABAPENTIN TABLET [Suspect]
     Active Substance: GABAPENTIN
     Indication: DIABETIC AMYOTROPHY
     Dosage: UNK
     Route: 065
  3. PAROXETINE HYDROCHLORIDE CONTROLLED-RELEASE TABLETS [Suspect]
     Active Substance: PAROXETINE HYDROCHLORIDE
     Indication: DIABETIC AMYOTROPHY
     Dosage: UNK
     Route: 065
  4. HYDROCODEINE [Suspect]
     Active Substance: DIHYDROCODEINE PHOSPHATE
     Indication: DIABETIC AMYOTROPHY
     Dosage: UNK
     Route: 065
  5. DULOXETINE DELAYED-RELEASE CAPSULES [Suspect]
     Active Substance: DULOXETINE
     Indication: DIABETIC AMYOTROPHY
     Dosage: UNK
     Route: 065
  6. LYRICA [Concomitant]
     Active Substance: PREGABALIN
     Indication: DIABETIC AMYOTROPHY
     Dosage: 75 MILLIGRAM, BID
     Route: 048
     Dates: start: 201807
  7. GLIPIZIDE. [Concomitant]
     Active Substance: GLIPIZIDE
     Indication: DIABETES MELLITUS
     Dosage: 5 MILLIGRAM (ONE TABLET IN THE MORNING AND HALF IN THE EVENING)
     Route: 065

REACTIONS (2)
  - Pain [Unknown]
  - Drug ineffective for unapproved indication [Unknown]
